FAERS Safety Report 8417834 (Version 3)
Quarter: 2013Q1

REPORT INFORMATION
  Report Type: Spontaneous
  Country: US (occurrence: US)
  Receive Date: 20120221
  Receipt Date: 20130214
  Transmission Date: 20140127
  Serious: Yes (Other)
  Sender: FDA-Public Use
  Company Number: US-BAYER-2012-016377

PATIENT
  Age: 30 Year
  Sex: Female
  Weight: 64.85 kg

DRUGS (2)
  1. YASMIN [Suspect]
     Indication: CONTRACEPTION
     Dosage: UNK
     Dates: start: 200710, end: 201009
  2. ASCORBIC ACID [Concomitant]
     Dosage: UNK UNK, PRN

REACTIONS (7)
  - Cerebrovascular accident [None]
  - Pain in extremity [None]
  - Headache [None]
  - Dysarthria [None]
  - Amnesia [None]
  - Abdominal pain [None]
  - Asthenia [None]
